FAERS Safety Report 25035468 (Version 4)
Quarter: 2025Q4

REPORT INFORMATION
  Report Type: Spontaneous
  Country: CA (occurrence: CA)
  Receive Date: 20250304
  Receipt Date: 20251215
  Transmission Date: 20260118
  Serious: Yes (Hospitalization, Other)
  Sender: AUROBINDO
  Company Number: CA-MLMSERVICE-20250219-PI416967-00275-2

PATIENT
  Age: 2 Decade
  Sex: Male

DRUGS (20)
  1. ARIPIPRAZOLE [Suspect]
     Active Substance: ARIPIPRAZOLE
     Indication: Schizophrenia
     Dosage: 20 MILLIGRAM, DAILY
     Route: 061
  2. ARIPIPRAZOLE [Suspect]
     Active Substance: ARIPIPRAZOLE
     Dosage: 400 MILLIGRAM, DAILY
  3. OLANZAPINE [Suspect]
     Active Substance: OLANZAPINE
     Indication: Persecutory delusion
     Dosage: 30 MILLIGRAM, ONCE A DAY
     Route: 061
  4. OLANZAPINE [Suspect]
     Active Substance: OLANZAPINE
     Indication: Somatic delusion
  5. OLANZAPINE [Suspect]
     Active Substance: OLANZAPINE
     Indication: Hallucination, auditory
  6. OLANZAPINE [Suspect]
     Active Substance: OLANZAPINE
     Indication: Schizophrenia
  7. QUETIAPINE [Suspect]
     Active Substance: QUETIAPINE
     Indication: Persecutory delusion
     Dosage: 900 MILLIGRAM, ONCE A DAY (EXTENDED RELEASE)
     Route: 065
  8. QUETIAPINE [Suspect]
     Active Substance: QUETIAPINE
     Indication: Somatic delusion
     Dosage: 25 MILLIGRAM
     Route: 065
  9. QUETIAPINE [Suspect]
     Active Substance: QUETIAPINE
     Indication: Hallucination, auditory
  10. QUETIAPINE [Suspect]
     Active Substance: QUETIAPINE
     Indication: Anxiety
  11. QUETIAPINE [Suspect]
     Active Substance: QUETIAPINE
     Indication: Schizophrenia
  12. HALOPERIDOL [Suspect]
     Active Substance: HALOPERIDOL
     Indication: Schizophrenia
     Dosage: 5 MILLIGRAM 1 EVERY FOUR HOURS
     Route: 061
  13. RISPERIDONE [Suspect]
     Active Substance: RISPERIDONE
     Indication: Schizophrenia
     Dosage: UNK
     Route: 065
  14. CHLORPROMAZINE [Suspect]
     Active Substance: CHLORPROMAZINE
     Indication: Schizophrenia
     Dosage: UNK
     Route: 065
  15. ABILIFY MAINTENA [Suspect]
     Active Substance: ARIPIPRAZOLE
     Indication: Schizophrenia
     Dosage: 400 MILLIGRAM (1 EVERY MONTHS)
  16. ABILIFY MAINTENA [Suspect]
     Active Substance: ARIPIPRAZOLE
     Dosage: 800 MILLIGRAM (1 EVERY MONTHS)
  17. ABILIFY MAINTENA [Suspect]
     Active Substance: ARIPIPRAZOLE
     Indication: Schizophrenia
     Dosage: 400 MILLIGRAM (1 EVERY MONTHS)
  18. TRAMADOL [Concomitant]
     Active Substance: TRAMADOL
     Indication: Pain
     Dosage: UNK
     Route: 065
  19. QUETIAPINE [Concomitant]
     Active Substance: QUETIAPINE
     Indication: Schizophrenia
     Dosage: 25 MILLIGRAM
     Route: 065
  20. QUETIAPINE [Concomitant]
     Active Substance: QUETIAPINE
     Dosage: 900 MILLIGRAM, ONCE A DAY
     Route: 065

REACTIONS (5)
  - Dystonia [Recovered/Resolved]
  - Drug ineffective [Recovered/Resolved]
  - Sedation [Unknown]
  - Torticollis [Unknown]
  - Protrusion tongue [Unknown]
